FAERS Safety Report 9246260 (Version 3)
Quarter: 2013Q2

REPORT INFORMATION
  Report Type: Spontaneous
  Country: US (occurrence: US)
  Receive Date: 20130422
  Receipt Date: 20130530
  Transmission Date: 20140414
  Serious: Yes (Hospitalization)
  Sender: FDA-Public Use
  Company Number: US-ELI_LILLY_AND_COMPANY-US201304005002

PATIENT
  Age: 64 Year
  Sex: Female
  Weight: 81.18 kg

DRUGS (18)
  1. FORTEO [Suspect]
     Indication: OSTEOPOROSIS
     Dosage: UNK, QD
     Route: 058
     Dates: start: 201111
  2. CYMBALTA [Concomitant]
     Indication: DEPRESSION
     Dosage: 30 MG, QD
     Route: 048
     Dates: start: 20120907
  3. CYMBALTA [Concomitant]
     Dosage: 60 MG, QD
     Route: 048
     Dates: start: 20121008
  4. ACTOS [Concomitant]
     Dosage: 30 MG, QD
     Route: 048
     Dates: start: 20120509
  5. LORAZEPAM [Concomitant]
     Dosage: 1 MG, PRN
     Route: 048
     Dates: start: 20121010
  6. LORAZEPAM [Concomitant]
     Dosage: 1 MG, BID
     Dates: start: 20121210
  7. DIPHENOXYLATE/ATROPINE [Concomitant]
     Indication: DIARRHOEA
     Dosage: 1 DF, PRN
     Route: 048
     Dates: start: 20121206
  8. PROPRANOLOL HCL [Concomitant]
     Dosage: 20 MG, QD
     Route: 048
     Dates: start: 20121105
  9. SIMVASTATIN [Concomitant]
     Dosage: 10 MG, QD
     Route: 048
     Dates: start: 20130103
  10. SIMVASTATIN [Concomitant]
     Dosage: 10 MG, QD
     Route: 048
     Dates: start: 20120528
  11. LISINOPRIL [Concomitant]
     Dosage: 20 MG, QD
     Route: 048
     Dates: start: 20130102
  12. HYDROCHLOROTHIAZIDE [Concomitant]
     Dosage: 25 MG, QD
     Route: 048
     Dates: start: 20130102
  13. MUCINEX [Concomitant]
     Dosage: 600 MG, BID
     Route: 048
     Dates: start: 20121025
  14. ROBITUSSIN DM [Concomitant]
     Dosage: 5 ML, UNK
     Route: 048
     Dates: start: 20121025
  15. ASPIRIN [Concomitant]
     Dosage: 81 MG, UNK
     Route: 048
  16. TRAMADOL [Concomitant]
     Dosage: 50 MG, UNK
     Route: 048
  17. RELIFEN [Concomitant]
     Dosage: UNK, BID
  18. ALBUTEROL SULFATE [Concomitant]
     Dosage: UNK, PRN
     Route: 055

REACTIONS (7)
  - Dehydration [Recovered/Resolved]
  - Hypotension [Recovered/Resolved]
  - Sepsis [Recovered/Resolved]
  - Urinary tract infection [Recovered/Resolved]
  - Pneumonia [Recovered/Resolved]
  - Pneumonia [Unknown]
  - Urinary tract infection [Unknown]
